FAERS Safety Report 8059827-X (Version None)
Quarter: 2012Q1

REPORT INFORMATION
  Report Type: 
  Country: None (occurrence: None)
  Receive Date: 20120119
  Receipt Date: 20120119
  Transmission Date: 20120608
  Serious: Yes (Hospitalization)
  Sender: FDA-Public Use
  Company Number: None

PATIENT
  Age: 79 Year
  Sex: Female
  Weight: 53.8 kg

DRUGS (12)
  1. HALDOL [Concomitant]
  2. CALCIUM CARBONATE [Concomitant]
  3. EXELON [Concomitant]
  4. CIPROFLOXACIN [Suspect]
     Indication: URINARY TRACT INFECTION
     Dosage: RECENT
  5. MIRALAX [Concomitant]
  6. REMERON [Concomitant]
  7. LOTENSIN [Concomitant]
  8. COUMADIN [Suspect]
     Indication: ATRIAL FIBRILLATION
     Dosage: 7.5MG QHS PO CHRONIC
     Route: 048
  9. COUMADIN [Suspect]
     Indication: AORTIC VALVE REPLACEMENT
     Dosage: 7.5MG QHS PO CHRONIC
     Route: 048
  10. CELEXA [Concomitant]
  11. DEPAKOTE [Concomitant]
  12. VITAMIN D [Concomitant]

REACTIONS (4)
  - UNRESPONSIVE TO STIMULI [None]
  - CARDIAC ARREST [None]
  - INTERNATIONAL NORMALISED RATIO INCREASED [None]
  - GASTROINTESTINAL HAEMORRHAGE [None]
